FAERS Safety Report 24603468 (Version 1)
Quarter: 2024Q4

REPORT INFORMATION
  Report Type: Spontaneous
  Country: US (occurrence: None)
  Receive Date: 20241109
  Receipt Date: 20241109
  Transmission Date: 20250114
  Serious: Yes (Hospitalization, Disabling)
  Sender: Public
  Company Number: None

PATIENT
  Age: 60 Year
  Sex: Female
  Weight: 58.5 kg

DRUGS (22)
  1. INTERFERON ALFA-2B [Suspect]
     Active Substance: INTERFERON ALFA-2B
     Indication: Hepatitis C
     Dosage: OTHER FREQUENCY : ONCE PER WEEK;?OTHER ROUTE : SUBCUTANEOUS INJECTION;?
     Route: 050
     Dates: start: 20070101, end: 20071215
  2. AMIODARONE [Concomitant]
     Active Substance: AMIODARONE
  3. METOPROLOL [Concomitant]
  4. DILTIAZEM [Concomitant]
  5. ELIQUIS [Concomitant]
     Active Substance: APIXABAN
  6. ATORVASTATIN [Concomitant]
  7. SUMATRIPTAN [Concomitant]
  8. ACETAMINOPHEN [Concomitant]
     Active Substance: ACETAMINOPHEN
  9. IBUPROFEN [Concomitant]
  10. VITAMIN C [Concomitant]
     Active Substance: ASCORBIC ACID
  11. VITAMINS [Concomitant]
     Active Substance: VITAMINS
  12. OMEGA 3 [Concomitant]
     Active Substance: CAPSAICIN
  13. CALCIUM [Concomitant]
  14. MAGNESIUM [Concomitant]
     Active Substance: MAGNESIUM
  15. GLUCOSAMINE [Concomitant]
  16. VITAMIN D3 [Concomitant]
  17. COENZYME Q10 [Concomitant]
     Active Substance: DIETARY SUPPLEMENT\UBIDECARENONE
  18. lutein/zeazanthin/alpha [Concomitant]
  19. BETA CAROTENE [Concomitant]
     Active Substance: BETA CAROTENE
  20. turmeric [Concomitant]
  21. K1 [Concomitant]
  22. K2 [Concomitant]

REACTIONS (1)
  - Atrial flutter [None]

NARRATIVE: CASE EVENT DATE: 20240828
